FAERS Safety Report 25971609 (Version 1)
Quarter: 2025Q4

REPORT INFORMATION
  Report Type: Spontaneous
  Country: US (occurrence: US)
  Receive Date: 20251029
  Receipt Date: 20251029
  Transmission Date: 20260117
  Serious: No
  Sender: ROCHE
  Company Number: UM-ROCHE-10000418695

PATIENT
  Age: 44 Year
  Sex: Female

DRUGS (3)
  1. XOLAIR PFS [Suspect]
     Active Substance: OMALIZUMAB
     Indication: Chronic spontaneous urticaria
     Route: 058
     Dates: start: 202507
  2. XOLAIR PFS [Suspect]
     Active Substance: OMALIZUMAB
  3. DUPIXENT [Suspect]
     Active Substance: DUPILUMAB
     Indication: Product used for unknown indication
     Route: 065

REACTIONS (2)
  - Eczema [Unknown]
  - Psoriasis [Unknown]
